FAERS Safety Report 5152179-4 (Version None)
Quarter: 2006Q4

REPORT INFORMATION
  Report Type: 
  Country: None (occurrence: None)
  Receive Date: 20061116
  Receipt Date: 20061107
  Transmission Date: 20070319
  Serious: Yes (Death)
  Sender: FDA-Public Use
  Company Number: IT-GLAXOSMITHKLINE-B0445602A

PATIENT
  Age: 55 Year
  Sex: Female

DRUGS (2)
  1. VALACYCLOVIR HCL [Suspect]
     Indication: HERPES SIMPLEX
     Route: 065
  2. ACYCLOVIR [Concomitant]
     Indication: HERPES SIMPLEX
     Route: 065
     Dates: start: 20050301

REACTIONS (12)
  - CHILLS [None]
  - CONJUNCTIVAL HYPERAEMIA [None]
  - ERYTHEMA MULTIFORME [None]
  - LIP ULCERATION [None]
  - MOUTH ULCERATION [None]
  - NASAL MUCOSAL DISORDER [None]
  - PAIN [None]
  - PURPURA [None]
  - PYREXIA [None]
  - RASH MACULO-PAPULAR [None]
  - RESPIRATORY FAILURE [None]
  - STEVENS-JOHNSON SYNDROME [None]
